FAERS Safety Report 4693447-X (Version None)
Quarter: 2005Q2

REPORT INFORMATION
  Report Type: 
  Country: None (occurrence: None)
  Receive Date: 20050615
  Receipt Date: 20050607
  Transmission Date: 20051028
  Serious: Yes (Hospitalization, Other)
  Sender: FDA-Public Use
  Company Number: USA-2005-0020531

PATIENT
  Age: 48 Year
  Sex: Male

DRUGS (3)
  1. OXYCONTIN [Suspect]
     Dates: start: 20050501
  2. OXYCODONE HCL [Suspect]
     Dates: start: 20050501
  3. PROLEKUIN ^CHIRON^ (ALDESLEUKIN) [Suspect]
     Indication: MALIGNANT MELANOMA
     Dosage: INTRAVENOUS
     Route: 042
     Dates: start: 20050501

REACTIONS (11)
  - AMNESIA [None]
  - BLOOD CREATININE INCREASED [None]
  - BLOOD PRESSURE INCREASED [None]
  - BLOOD UREA INCREASED [None]
  - HALLUCINATION, VISUAL [None]
  - JUDGEMENT IMPAIRED [None]
  - MENTAL STATUS CHANGES [None]
  - OEDEMA PERIPHERAL [None]
  - PARANOIA [None]
  - ROAD TRAFFIC ACCIDENT [None]
  - SCREAMING [None]
